FAERS Safety Report 7504423-3 (Version None)
Quarter: 2011Q2

REPORT INFORMATION
  Report Type: 
  Country: None (occurrence: None)
  Receive Date: 20110525
  Receipt Date: 20110516
  Transmission Date: 20111010
  Serious: Yes (Death)
  Sender: FDA-Public Use
  Company Number: US-NAPPMUNDI-USA-2011-0067090

PATIENT
  Sex: Female
  Weight: 88.435 kg

DRUGS (19)
  1. ZOFRAN [Concomitant]
     Indication: NAUSEA
     Dosage: 4 MG, Q6H
     Route: 042
  2. DULCOLAX [Concomitant]
     Indication: CONSTIPATION
     Dosage: 10 MG, Q12H PRN
  3. NITROGLYCERIN [Concomitant]
     Indication: CHEST PAIN
     Dosage: 0.4 MG, UNK
  4. LOPRESSOR [Concomitant]
     Indication: PRODUCT USED FOR UNKNOWN INDICATION
     Dosage: 5 MG, Q4H
     Route: 042
  5. ZOFRAN [Concomitant]
     Indication: VOMITING
     Dosage: 4 MG, Q6H PRN
     Route: 042
  6. NITRO-BID [Concomitant]
     Indication: CHEST PAIN
     Dosage: 1 G, Q4H
  7. ATIVAN [Concomitant]
     Indication: PRODUCT USED FOR UNKNOWN INDICATION
     Dosage: 1 MG, Q4H
     Route: 042
  8. MORPHINE [Concomitant]
     Indication: PAIN
     Dosage: 2 MG, Q4H
     Route: 042
  9. BUTRANS [Suspect]
     Indication: PAIN
     Dosage: 10 MCG/HR, DAILY
     Dates: start: 20110404, end: 20110401
  10. ATIVAN [Concomitant]
     Dosage: 1 MG, Q6H
     Route: 042
  11. ZOSYN [Concomitant]
     Indication: PRODUCT USED FOR UNKNOWN INDICATION
     Dosage: 4.5 G, Q8H
     Route: 042
  12. TYLENOL RECTAL SUPPOSITORIES [Concomitant]
     Indication: PRODUCT USED FOR UNKNOWN INDICATION
     Dosage: 650 MG, Q6H
     Route: 054
  13. ATROPINE OPHTHALMIC [Concomitant]
     Indication: PRODUCT USED FOR UNKNOWN INDICATION
     Dosage: 1 %, UNK
     Route: 047
  14. PROTONIX [Concomitant]
     Indication: PRODUCT USED FOR UNKNOWN INDICATION
     Dosage: 40 MG, DAILY
     Route: 042
  15. LEVAQUIN [Concomitant]
     Indication: PRODUCT USED FOR UNKNOWN INDICATION
     Dosage: 750 MG, Q24H
     Route: 042
  16. LEVSIN [Concomitant]
     Indication: GASTROINTESTINAL PAIN
     Dosage: 0.125 MG, Q6H PRN
     Route: 060
  17. VANCOMYCIN [Concomitant]
     Indication: PRODUCT USED FOR UNKNOWN INDICATION
     Dosage: 1 G, Q24H
     Route: 042
  18. POTASSIUM CHLORIDE [Concomitant]
     Indication: PRODUCT USED FOR UNKNOWN INDICATION
     Dosage: 10 MEQ, Q4H
     Route: 042
  19. XOPENEX [Concomitant]
     Indication: DYSPNOEA

REACTIONS (4)
  - NAUSEA [None]
  - VOMITING [None]
  - CARDIOPULMONARY FAILURE [None]
  - SEPSIS [None]
